FAERS Safety Report 8852669 (Version 2)
Quarter: 2012Q4

REPORT INFORMATION
  Report Type: 
  Country: DE (occurrence: DE)
  Receive Date: 20121022
  Receipt Date: 20121120
  Transmission Date: 20130627
  Serious: Yes (Other)
  Sender: FDA-Public Use
  Company Number: DE-ALEXION-A201201955

PATIENT
  Age: 24 Year
  Sex: Female

DRUGS (2)
  1. SOLIRIS 300MG [Suspect]
     Indication: HAEMOLYTIC URAEMIC SYNDROME
     Dosage: 900mg, UNK
     Route: 042
     Dates: start: 201205
  2. SOLIRIS 300MG [Suspect]
     Dosage: 1200 mg, UNK
     Route: 042
     Dates: end: 20120723

REACTIONS (3)
  - Abortion induced [Unknown]
  - Hypertension [Unknown]
  - Exposure during pregnancy [Recovered/Resolved]
